FAERS Safety Report 7970206-3 (Version None)
Quarter: 2011Q4

REPORT INFORMATION
  Report Type: 
  Country: None (occurrence: None)
  Receive Date: 20111212
  Receipt Date: 20111201
  Transmission Date: 20120403
  Serious: Yes (Other)
  Sender: FDA-Public Use
  Company Number: JP-JNJFOC-20111202457

PATIENT
  Age: 27 Year
  Sex: Male

DRUGS (2)
  1. REMICADE [Suspect]
     Indication: CROHN'S DISEASE
     Route: 042
     Dates: start: 20110903
  2. REMICADE [Suspect]
     Route: 042
     Dates: start: 20091229

REACTIONS (1)
  - HENOCH-SCHONLEIN PURPURA [None]
